FAERS Safety Report 5895225-2 (Version None)
Quarter: 2008Q3

REPORT INFORMATION
  Report Type: 
  Country: None (occurrence: None)
  Receive Date: 20080924
  Receipt Date: 20080918
  Transmission Date: 20090109
  Serious: Yes (Other)
  Sender: FDA-Public Use
  Company Number: A0748139A

PATIENT
  Age: 63 Year
  Sex: Female

DRUGS (7)
  1. REQUIP [Suspect]
     Indication: RESTLESS LEGS SYNDROME
     Dosage: .25MG PER DAY
     Route: 048
     Dates: start: 20080915
  2. SEROQUEL [Concomitant]
  3. NEURONTIN [Concomitant]
  4. CYMBALTA [Concomitant]
  5. ZOLOFT [Concomitant]
  6. ZYPREXA [Concomitant]
  7. VISTARIL [Concomitant]

REACTIONS (5)
  - DISORIENTATION [None]
  - DIZZINESS [None]
  - FALL [None]
  - HALLUCINATION [None]
  - PANIC ATTACK [None]
